FAERS Safety Report 13690395 (Version 1)
Quarter: 2017Q2

REPORT INFORMATION
  Report Type: Spontaneous
  Country: US (occurrence: US)
  Receive Date: 20170625
  Receipt Date: 20170625
  Transmission Date: 20170830
  Serious: No
  Sender: FDA-Public Use
  Company Number: None

PATIENT
  Age: 36 Year
  Sex: Female

DRUGS (1)
  1. HEPARIN SODINJ 10000/MLPRESERVATIVE FR [Suspect]
     Active Substance: HEPARIN SODIUM

REACTIONS (2)
  - Drug dispensing error [None]
  - Drug dose omission [None]

NARRATIVE: CASE EVENT DATE: 20170624
